FAERS Safety Report 4754609-6 (Version None)
Quarter: 2005Q3

REPORT INFORMATION
  Report Type: 
  Country: None (occurrence: None)
  Receive Date: 20050829
  Receipt Date: 20050823
  Transmission Date: 20060218
  Serious: Yes (Hospitalization)
  Sender: FDA-Public Use
  Company Number: BR-GLAXOSMITHKLINE-A0571680A

PATIENT
  Age: 10 Year
  Sex: Female

DRUGS (1)
  1. AEROLIN [Suspect]
     Indication: ASTHMA
     Route: 065
     Dates: start: 19870801, end: 19910801

REACTIONS (3)
  - DRUG INEFFECTIVE [None]
  - PHARMACEUTICAL PRODUCT COMPLAINT [None]
  - STATUS ASTHMATICUS [None]
